FAERS Safety Report 5512505-0 (Version None)
Quarter: 2007Q4

REPORT INFORMATION
  Report Type: 
  Country: None (occurrence: None)
  Receive Date: 20071112
  Receipt Date: 20070529
  Transmission Date: 20080405
  Serious: No
  Sender: FDA-Public Use
  Company Number: A0653233A

PATIENT
  Sex: Female

DRUGS (6)
  1. AVANDAMET [Suspect]
     Dosage: 4MG TWICE PER DAY
     Route: 048
  2. TOPROL-XL [Concomitant]
  3. DIOXIN [Concomitant]
  4. NORVASC [Concomitant]
  5. QUINAPRIL HCL [Concomitant]
  6. ASPIRIN [Concomitant]

REACTIONS (3)
  - FATIGUE [None]
  - MUSCULAR WEAKNESS [None]
  - PAIN [None]
